FAERS Safety Report 5158143-3 (Version None)
Quarter: 2006Q4

REPORT INFORMATION
  Report Type: 
  Country: None (occurrence: None)
  Receive Date: 20061120
  Receipt Date: 20061120
  Transmission Date: 20070319
  Serious: No
  Sender: FDA-Public Use
  Company Number: None

PATIENT
  Age: 58 Year
  Sex: Male
  Weight: 102.0593 kg

DRUGS (1)
  1. VERSED [Suspect]
     Dates: start: 20061101, end: 20061101

REACTIONS (3)
  - AMNESIA [None]
  - FATIGUE [None]
  - POST PROCEDURAL COMPLICATION [None]
